FAERS Safety Report 4893682-1 (Version None)
Quarter: 2005Q4

REPORT INFORMATION
  Report Type: 
  Country: None (occurrence: None)
  Receive Date: 20051223
  Receipt Date: 20050923
  Transmission Date: 20060501
  Serious: No
  Sender: FDA-Public Use
  Company Number: 2005PV002469

PATIENT
  Sex: Female

DRUGS (2)
  1. SYMLIN [Suspect]
     Dosage: SC
     Route: 058
     Dates: start: 20050701, end: 20050901
  2. ORAL CONTRACEPTIVE NOS [Concomitant]

REACTIONS (1)
  - NAUSEA [None]
